FAERS Safety Report 5986917-5 (Version None)
Quarter: 2008Q4

REPORT INFORMATION
  Report Type: 
  Country: None (occurrence: None)
  Receive Date: 20081128
  Receipt Date: 20081118
  Transmission Date: 20090506
  Serious: Yes (Other)
  Sender: FDA-Public Use
  Company Number: THYM-1000838

PATIENT
  Age: 5 Month

DRUGS (5)
  1. THYMOGLOBULIN [Suspect]
     Indication: CORD BLOOD TRANSPLANT THERAPY
     Dosage: 2.5 MG/KG
  2. CYCLOSPORINE [Suspect]
     Indication: CORD BLOOD TRANSPLANT THERAPY
     Dosage: 5 MG/KG
  3. CYCLOPHOSPHAMIDE [Suspect]
     Indication: CORD BLOOD TRANSPLANT THERAPY
     Dosage: 60 MG/KG, INTRAVENOUS
     Route: 042
  4. ETOPOSIDE [Suspect]
     Indication: HISTIOCYTOSIS HAEMATOPHAGIC
     Dosage: 30 MG/KG, QD
  5. TREOSULFAN (TREOSUFLAN) [Suspect]
     Indication: CORD BLOOD TRANSPLANT THERAPY
     Dosage: 12 G/M2, INTRAVENOUS
     Route: 042

REACTIONS (2)
  - ACUTE GRAFT VERSUS HOST DISEASE [None]
  - HYPERTENSION [None]
